FAERS Safety Report 6619129-2 (Version None)
Quarter: 2010Q1

REPORT INFORMATION
  Report Type: 
  Country: None (occurrence: None)
  Receive Date: 20100305
  Receipt Date: 20100305
  Transmission Date: 20100710
  Serious: Yes (Hospitalization)
  Sender: FDA-Public Use
  Company Number: None

PATIENT
  Sex: Female
  Weight: 10.8 kg

DRUGS (2)
  1. CISPLATIN [Suspect]
     Dosage: 72 MG
  2. ETOPOSIDE [Suspect]
     Dosage: 216 MG

REACTIONS (8)
  - BLOOD CREATININE INCREASED [None]
  - DRUG TOXICITY [None]
  - NEUTROPENIA [None]
  - PLEURAL EFFUSION [None]
  - PYREXIA [None]
  - RESPIRATORY DISTRESS [None]
  - TACHYPNOEA [None]
  - URINE OUTPUT DECREASED [None]
